FAERS Safety Report 8326882-9 (Version None)
Quarter: 2012Q2

REPORT INFORMATION
  Report Type: 
  Country: None (occurrence: None)
  Receive Date: 20120501
  Receipt Date: 20120416
  Transmission Date: 20120825
  Serious: Yes (Death)
  Sender: FDA-Public Use
  Company Number: ES-WATSON-2012-06803

PATIENT
  Age: 46 Year
  Sex: Male

DRUGS (5)
  1. MYCOPHENOLATE MEFETIL [Suspect]
     Indication: LIVER TRANSPLANT
     Dosage: UNK UNK, UNKNOWN
     Route: 065
  2. CYCLOSPORINE [Suspect]
     Indication: LIVER TRANSPLANT
     Dosage: UNK UNK, UNKNOWN
     Route: 065
  3. PREDNISONE TAB [Suspect]
     Indication: LIVER TRANSPLANT
     Dosage: UNK UNK, UNKNOWN
     Route: 065
  4. BASILIXIMAB [Suspect]
     Indication: LIVER TRANSPLANT
     Dosage: UNK
     Route: 065
  5. TACROLIMUS [Suspect]
     Indication: LIVER TRANSPLANT
     Dosage: UNK UNK, UNKNOWN
     Route: 065

REACTIONS (3)
  - FUNGAL INFECTION [None]
  - PERITONITIS BACTERIAL [None]
  - BACTERAEMIA [None]
